FAERS Safety Report 14390216 (Version 3)
Quarter: 2018Q1

REPORT INFORMATION
  Report Type: Report from Study
  Country: BR (occurrence: BR)
  Receive Date: 20180116
  Receipt Date: 20180314
  Transmission Date: 20180509
  Serious: Yes (Other)
  Sender: FDA-Public Use
  Company Number: BR-ROCHE-1776841

PATIENT
  Age: 55 Year
  Sex: Female
  Weight: 55 kg

DRUGS (13)
  1. METHYLPREDNISOLONE. [Concomitant]
     Active Substance: METHYLPREDNISOLONE
     Route: 042
     Dates: start: 20160610, end: 20160610
  2. MABTHERA [Suspect]
     Active Substance: RITUXIMAB
     Route: 042
     Dates: start: 20140609
  3. DORFLEX [Concomitant]
     Active Substance: CAFFEINE\DIPYRONE\ORPHENADRINE
     Dosage: AS REQUIRED
     Route: 065
  4. DIPHENHYDRAMINE. [Concomitant]
     Active Substance: DIPHENHYDRAMINE
     Route: 042
     Dates: start: 20160610, end: 20160610
  5. OMEPRAZOLE. [Concomitant]
     Active Substance: OMEPRAZOLE
     Indication: GASTRITIS
  6. MABTHERA [Suspect]
     Active Substance: RITUXIMAB
     Indication: RHEUMATOID ARTHRITIS
     Dosage: LATEST DOSE ON 15/APR/2017.
     Route: 042
     Dates: start: 20160610, end: 20160610
  7. DEXCHLORPHENIRAMINE [Concomitant]
     Active Substance: DEXCHLORPHENIRAMINE
     Route: 048
     Dates: start: 20160610, end: 20160610
  8. DECADRON [Concomitant]
     Active Substance: DEXAMETHASONE
  9. PARACETAMOL [Concomitant]
     Active Substance: ACETAMINOPHEN
     Route: 048
     Dates: start: 20160610, end: 20160610
  10. PANTOPRAZOLE [Concomitant]
     Active Substance: PANTOPRAZOLE
     Indication: GASTRITIS
  11. NIMESULIDE [Suspect]
     Active Substance: NIMESULIDE
     Indication: PRODUCT USED FOR UNKNOWN INDICATION
     Route: 065
  12. DEFLAZACORT [Concomitant]
     Active Substance: DEFLAZACORT
     Indication: RHEUMATOID ARTHRITIS
     Dosage: WHEN REQUIRED
     Route: 065
  13. DEFLAZACORT [Concomitant]
     Active Substance: DEFLAZACORT
     Indication: PAIN

REACTIONS (7)
  - Hyperparathyroidism [Recovered/Resolved]
  - Throat irritation [Recovered/Resolved]
  - Erythema [Recovered/Resolved]
  - Parathyroid tumour benign [Recovered/Resolved]
  - Parathyroid disorder [Recovering/Resolving]
  - Dyspepsia [Recovered/Resolved]
  - Pruritus [Recovered/Resolved]

NARRATIVE: CASE EVENT DATE: 20160610
